FAERS Safety Report 10945551 (Version 1)
Quarter: 2015Q1

REPORT INFORMATION
  Report Type: Spontaneous
  Country: FR (occurrence: None)
  Receive Date: 20150319
  Receipt Date: 20150319
  Transmission Date: 20150721
  Serious: Yes (Hospitalization)
  Sender: FDA-Public Use
  Company Number: 2783278

PATIENT
  Age: 5 Year
  Sex: Male
  Weight: 22 kg

DRUGS (7)
  1. BIONOLYTE [Concomitant]
     Active Substance: UNSPECIFIED INGREDIENT
  2. CYCLOPHOSPHAMIDE. [Suspect]
     Active Substance: CYCLOPHOSPHAMIDE
     Indication: EPENDYMOMA
     Dates: start: 20150103, end: 20150105
  3. ZOPHREN [Concomitant]
     Active Substance: ONDANSETRON
  4. ETOPOSIDE TEVA [Suspect]
     Active Substance: ETOPOSIDE
     Indication: EPENDYMOMA
     Dates: start: 20150103, end: 20150105
  5. UROMITEXAN [Concomitant]
     Active Substance: MESNA
  6. BACTRIM [Concomitant]
     Active Substance: SULFAMETHOXAZOLE\TRIMETHOPRIM
  7. VINCRISTINE SULFATE. [Suspect]
     Active Substance: VINCRISTINE SULFATE
     Indication: EPENDYMOMA
     Dates: start: 20150103

REACTIONS (1)
  - Febrile bone marrow aplasia [None]

NARRATIVE: CASE EVENT DATE: 20150112
